FAERS Safety Report 25337315 (Version 1)
Quarter: 2025Q2

REPORT INFORMATION
  Report Type: Report from Study
  Country: US (occurrence: US)
  Receive Date: 20250520
  Receipt Date: 20250520
  Transmission Date: 20250717
  Serious: Yes (Other)
  Sender: JAZZ
  Company Number: US-JAZZ PHARMACEUTICALS-2025-US-010762

PATIENT
  Sex: Female
  Weight: 72 kg

DRUGS (9)
  1. EPIDIOLEX [Suspect]
     Active Substance: CANNABIDIOL
     Indication: Generalised tonic-clonic seizure
     Dosage: 3.6 MILLILITER, BID
     Route: 048
     Dates: start: 2018
  2. EPIDIOLEX [Suspect]
     Active Substance: CANNABIDIOL
     Indication: Epilepsy
  3. ARMOUR THYROID [Concomitant]
     Active Substance: THYROID, PORCINE
  4. CLOBAZAM [Concomitant]
     Active Substance: CLOBAZAM
  5. LORAZEPAM [Concomitant]
     Active Substance: LORAZEPAM
  6. NAYZILAM [Concomitant]
     Active Substance: MIDAZOLAM
  7. VIMPAT [Concomitant]
     Active Substance: LACOSAMIDE
  8. ZOFRAN [Concomitant]
     Active Substance: ONDANSETRON HYDROCHLORIDE
  9. VITAMIN D NOS [Concomitant]
     Active Substance: CHOLECALCIFEROL\ERGOCALCIFEROL

REACTIONS (6)
  - Seizure [Unknown]
  - Epileptic aura [Unknown]
  - Weight decreased [Unknown]
  - Depression [Unknown]
  - Drug resistance [Unknown]
  - Product dose omission issue [Unknown]
